FAERS Safety Report 6318791-1 (Version None)
Quarter: 2009Q3

REPORT INFORMATION
  Report Type: 
  Country: None (occurrence: None)
  Receive Date: 20090820
  Receipt Date: 20090820
  Transmission Date: 20100115
  Serious: Yes (Other)
  Sender: FDA-Public Use
  Company Number: None

PATIENT
  Sex: Female
  Weight: 51.7101 kg

DRUGS (1)
  1. DIVALPROEX SODIUM [Suspect]
     Indication: CONVULSION
     Dosage: 500 MG TWICE BID PO
     Route: 048
     Dates: start: 20081017

REACTIONS (1)
  - DRUG LEVEL FLUCTUATING [None]
